FAERS Safety Report 10516151 (Version 3)
Quarter: 2015Q1

REPORT INFORMATION
  Report Type: Spontaneous
  Country: GB (occurrence: GB)
  Receive Date: 20141014
  Receipt Date: 20150204
  Transmission Date: 20150720
  Serious: Yes (Other)
  Sender: FDA-Public Use
  Company Number: GB-BRACCO-000936

PATIENT
  Age: 59 Year
  Sex: Male

DRUGS (1)
  1. NIOPAM [Suspect]
     Active Substance: IOPAMIDOL
     Indication: ANGIOGRAM
     Route: 013
     Dates: start: 20141003, end: 20141003

REACTIONS (6)
  - Unresponsive to stimuli [Recovered/Resolved]
  - Electrocardiogram ST segment elevation [Recovered/Resolved]
  - Pruritus [None]
  - Feeling hot [None]
  - Cold sweat [Recovered/Resolved]
  - Bradycardia [None]

NARRATIVE: CASE EVENT DATE: 20141003
